FAERS Safety Report 5801297-3 (Version None)
Quarter: 2008Q3

REPORT INFORMATION
  Report Type: 
  Country: None (occurrence: None)
  Receive Date: 20080707
  Receipt Date: 20080624
  Transmission Date: 20090109
  Serious: Yes (Life-Threatening, Hospitalization)
  Sender: FDA-Public Use
  Company Number: UA-JNJFOC-20080605594

PATIENT
  Age: 7 Year
  Sex: Male

DRUGS (1)
  1. RISPERIDONE [Suspect]
     Indication: AUTISM
     Route: 048

REACTIONS (4)
  - BODY TEMPERATURE INCREASED [None]
  - NAIL DISCOLOURATION [None]
  - SEDATION [None]
  - SOMNOLENCE [None]
